FAERS Safety Report 21334379 (Version 1)
Quarter: 2022Q3

REPORT INFORMATION
  Report Type: Spontaneous
  Country: US (occurrence: None)
  Receive Date: 20220914
  Receipt Date: 20220914
  Transmission Date: 20221027
  Serious: Yes (Hospitalization)
  Sender: FDA-Public Use
  Company Number: US-ROCHE-3176050

PATIENT
  Sex: Female

DRUGS (2)
  1. XOLAIR [Suspect]
     Active Substance: OMALIZUMAB
     Indication: Asthma
     Route: 058
     Dates: start: 20170812
  2. XOLAIR [Suspect]
     Active Substance: OMALIZUMAB

REACTIONS (8)
  - Foot deformity [Unknown]
  - Gastric disorder [Unknown]
  - Peripheral swelling [Unknown]
  - Skin discolouration [Unknown]
  - Peripheral coldness [Unknown]
  - Chills [Unknown]
  - Arthralgia [Unknown]
  - Limb mass [Unknown]
